FAERS Safety Report 7494042-X (Version None)
Quarter: 2011Q2

REPORT INFORMATION
  Report Type: 
  Country: None (occurrence: None)
  Receive Date: 20110520
  Receipt Date: 20110516
  Transmission Date: 20111010
  Serious: Yes (Life-Threatening)
  Sender: FDA-Public Use
  Company Number: JP-PFIZER INC-2011104916

PATIENT
  Age: 66 Year
  Sex: Female

DRUGS (4)
  1. BACILLUS CALMETTE-GUERIN [Concomitant]
     Dosage: UNK
     Dates: start: 20080911
  2. EPIRUBICIN HYDROCHLORIDE [Suspect]
     Indication: URETERIC CANCER RECURRENT
  3. EPIRUBICIN HYDROCHLORIDE [Suspect]
     Indication: RECURRENT CANCER
  4. EPIRUBICIN HYDROCHLORIDE [Suspect]
     Indication: BLADDER CANCER
     Dosage: UNK
     Route: 043
     Dates: start: 20080911

REACTIONS (2)
  - BLOOD PRESSURE DECREASED [None]
  - DYSPNOEA [None]
